FAERS Safety Report 4787088-3 (Version None)
Quarter: 2005Q3

REPORT INFORMATION
  Report Type: 
  Country: None (occurrence: None)
  Receive Date: 20050930
  Receipt Date: 20050928
  Transmission Date: 20060218
  Serious: Yes (Hospitalization, Other)
  Sender: FDA-Public Use
  Company Number: NLWYE012128SEP05

PATIENT
  Age: 52 Year
  Sex: Male

DRUGS (1)
  1. EFFEXOR XR [Suspect]
     Indication: DEPRESSION
     Dosage: 150 MG 1X PER 1 DAY, ORAL
     Route: 048
     Dates: start: 20050809, end: 20050901

REACTIONS (5)
  - BRADYCARDIA [None]
  - FALL [None]
  - MYDRIASIS [None]
  - SNORING [None]
  - SYNCOPE [None]
